FAERS Safety Report 15756710 (Version 1)
Quarter: 2018Q4

REPORT INFORMATION
  Report Type: Other
  Country: US (occurrence: US)
  Receive Date: 20181224
  Receipt Date: 20181224
  Transmission Date: 20190205
  Serious: Yes (Other)
  Sender: FDA-Public Use
  Company Number: US-ASCEND THERAPEUTICS-2060543

PATIENT
  Age: 71 Year
  Sex: Female

DRUGS (15)
  1. METOPROLOL. [Suspect]
     Active Substance: METOPROLOL
  2. AMLODIPINE [Suspect]
     Active Substance: AMLODIPINE BESYLATE
  3. MULTI VITAMIN (ASCORBIC ACID, PYRIDOXINE HYDROCHLORIDE, TOCOPHERYL ACE [Concomitant]
  4. DIPHENHYDRAMINE. [Concomitant]
     Active Substance: DIPHENHYDRAMINE
  5. ASPIRIN. [Concomitant]
     Active Substance: ASPIRIN
  6. VITAMIN A D (ERGOCALCIFEROL, RETINOL) [Concomitant]
  7. BENAZEPRIL [Suspect]
     Active Substance: BENAZEPRIL HYDROCHLORIDE
  8. LORATADINE. [Suspect]
     Active Substance: LORATADINE
  9. ESTROGEL [Suspect]
     Active Substance: ESTRADIOL
     Indication: PRODUCT USED FOR UNKNOWN INDICATION
  10. LEVOTHYROXINE. [Concomitant]
     Active Substance: LEVOTHYROXINE
  11. CALCIUM [Concomitant]
     Active Substance: CALCIUM
  12. FISH OIL [Concomitant]
     Active Substance: FISH OIL
  13. MELOXICAM. [Suspect]
     Active Substance: MELOXICAM
  14. ATENOLOL. [Suspect]
     Active Substance: ATENOLOL
  15. TURMERIC (CURCUMA LONGA RHIZOME) [Suspect]
     Active Substance: HERBALS\TURMERIC

REACTIONS (2)
  - Autoimmune hepatitis [Unknown]
  - Drug interaction [Unknown]
